FAERS Safety Report 11669772 (Version 1)
Quarter: 2015Q4

REPORT INFORMATION
  Report Type: Spontaneous
  Country: US (occurrence: US)
  Receive Date: 20151027
  Receipt Date: 20151027
  Transmission Date: 20160304
  Serious: No
  Sender: FDA-Public Use
  Company Number: US-ELI_LILLY_AND_COMPANY-US201004005516

PATIENT
  Sex: Female

DRUGS (1)
  1. FORTEO [Suspect]
     Active Substance: TERIPARATIDE
     Dosage: 20 UG, UNK
     Dates: start: 200911

REACTIONS (5)
  - Injection site bruising [Not Recovered/Not Resolved]
  - Bone pain [Not Recovered/Not Resolved]
  - Blood calcium decreased [Unknown]
  - Vitamin D decreased [Unknown]
  - Drug ineffective [Not Recovered/Not Resolved]
